FAERS Safety Report 12581037 (Version 1)
Quarter: 2016Q3

REPORT INFORMATION
  Report Type: Spontaneous
  Country: US (occurrence: US)
  Receive Date: 20160721
  Receipt Date: 20160721
  Transmission Date: 20161109
  Serious: No
  Sender: FDA-Public Use
  Company Number: PHEH2016US018099

PATIENT
  Sex: Female

DRUGS (1)
  1. JADENU [Suspect]
     Active Substance: DEFERASIROX
     Indication: THALASSAEMIA SICKLE CELL
     Dosage: 1080 MG, QD
     Route: 048

REACTIONS (1)
  - Mean cell volume abnormal [Unknown]
